FAERS Safety Report 18734144 (Version 9)
Quarter: 2022Q2

REPORT INFORMATION
  Report Type: Spontaneous
  Country: US (occurrence: US)
  Receive Date: 20210113
  Receipt Date: 20220516
  Transmission Date: 20220721
  Serious: Yes (Life-Threatening, Hospitalization, Other)
  Sender: FDA-Public Use
  Company Number: US-SANOFI-00423926

PATIENT
  Age: 50 Year
  Sex: Male
  Weight: 135 kg

DRUGS (1)
  1. APIDRA [Suspect]
     Active Substance: INSULIN GLULISINE
     Indication: Type 2 diabetes mellitus
     Dosage: 15 IU, WITH MEALS
     Route: 065
     Dates: start: 20210110, end: 20210110

REACTIONS (15)
  - Abdominal pain upper [Recovered/Resolved]
  - Injury [Recovered/Resolved]
  - Feeling abnormal [Unknown]
  - Cardiac disorder [Recovered/Resolved]
  - Angina pectoris [Unknown]
  - Chest discomfort [Unknown]
  - Taste disorder [Recovered/Resolved]
  - Euphoric mood [Unknown]
  - Dysuria [Unknown]
  - Abdominal distension [Unknown]
  - Dizziness [Unknown]
  - Blood pressure increased [Unknown]
  - Hypoaesthesia [Unknown]
  - Hyperglycaemia [Unknown]
  - Injection site induration [Unknown]

NARRATIVE: CASE EVENT DATE: 20210110
